FAERS Safety Report 6457923-1 (Version None)
Quarter: 2009Q4

REPORT INFORMATION
  Report Type: 
  Country: None (occurrence: None)
  Receive Date: 20091125
  Receipt Date: 20091118
  Transmission Date: 20100525
  Serious: Yes (Hospitalization)
  Sender: FDA-Public Use
  Company Number: GR-ABBOTT-09P-066-0609700-00

PATIENT
  Age: 28 Year
  Sex: Female

DRUGS (1)
  1. KLARICID [Suspect]
     Indication: UPPER RESPIRATORY TRACT INFECTION
     Route: 048

REACTIONS (1)
  - DEAFNESS NEUROSENSORY [None]
